FAERS Safety Report 15540554 (Version 2)
Quarter: 2022Q2

REPORT INFORMATION
  Report Type: Spontaneous
  Country: BE (occurrence: BE)
  Receive Date: 20181023
  Receipt Date: 20220425
  Transmission Date: 20220721
  Serious: Yes (Death, Hospitalization, Other)
  Sender: FDA-Public Use
  Company Number: BE-TEVA-2018-BE-966269

PATIENT
  Age: 59 Year
  Sex: Female

DRUGS (12)
  1. CISPLATIN [Suspect]
     Active Substance: CISPLATIN
     Indication: Lung adenocarcinoma recurrent
     Route: 065
  2. PEMETREXED [Suspect]
     Active Substance: PEMETREXED
     Indication: Lung adenocarcinoma recurrent
     Route: 065
  3. PEMETREXED [Suspect]
     Active Substance: PEMETREXED
     Dosage: AS MAINTENANCE THERAPY
     Route: 065
  4. METHYLPREDNISOLONE [Suspect]
     Active Substance: METHYLPREDNISOLONE
     Indication: Lung adenocarcinoma recurrent
     Dosage: 48 MILLIGRAM DAILY; STARTING 1 DAY BEFORE THE ADMINISTRATION OF PEMETREXED
     Route: 065
  5. AMLODIPINE [Concomitant]
     Active Substance: AMLODIPINE BESYLATE
  6. PERINDOPRIL [Concomitant]
     Active Substance: PERINDOPRIL
  7. NEBIVOLOL [Concomitant]
     Active Substance: NEBIVOLOL
  8. ASPIRIN [Concomitant]
     Active Substance: ASPIRIN
     Dosage: HAD BEEN RECEIVING FOR }1 YEAR BEFORE PRES
  9. PANTOPRAZOLE [Concomitant]
     Active Substance: PANTOPRAZOLE
     Dosage: HAD BEEN RECEIVING FOR }1 YEAR BEFORE PRES
  10. MIRTAZAPINE [Concomitant]
     Active Substance: MIRTAZAPINE
     Dosage: HAD BEEN RECEIVING FOR }1 YEAR BEFORE PRES
  11. TRAMADOL [Concomitant]
     Active Substance: TRAMADOL
     Dosage: HAD BEEN RECEIVING FOR }1 YEAR BEFORE PRES
  12. LORMETAZEPAM [Concomitant]
     Active Substance: LORMETAZEPAM
     Dosage: HAD BEEN RECEIVING FOR }1 YEAR BEFORE PRES

REACTIONS (6)
  - Posterior reversible encephalopathy syndrome [Recovering/Resolving]
  - Hypertension [Recovered/Resolved]
  - Leukocytosis [Unknown]
  - Pneumocystis jirovecii pneumonia [Unknown]
  - Respiratory failure [Unknown]
  - Death [Fatal]
